FAERS Safety Report 21383374 (Version 1)
Quarter: 2022Q3

REPORT INFORMATION
  Report Type: Report from Study
  Country: US (occurrence: US)
  Receive Date: 20220927
  Receipt Date: 20220927
  Transmission Date: 20221027
  Serious: Yes (Other)
  Sender: FDA-Public Use
  Company Number: US-ABBVIE-4130230

PATIENT
  Age: 64 Year
  Sex: Male
  Weight: 107.95 kg

DRUGS (8)
  1. HUMIRA [Suspect]
     Active Substance: ADALIMUMAB
     Indication: Psoriasis
     Dosage: CITRATE FREE
     Route: 058
     Dates: start: 2021, end: 202207
  2. HUMIRA [Suspect]
     Active Substance: ADALIMUMAB
     Route: 058
     Dates: start: 202208
  3. ALLEGRA [Concomitant]
     Active Substance: FEXOFENADINE HYDROCHLORIDE
     Indication: Hypersensitivity
  4. PFIZER-BIONTECH COVID-19 VACCINE [Concomitant]
     Active Substance: TOZINAMERAN
     Indication: Immunisation
     Dosage: TIME INTERVAL: TOTAL: 2ND BOOSTER (1 IN ONCE)
     Route: 030
     Dates: start: 20220713, end: 20220713
  5. PFIZER-BIONTECH COVID-19 VACCINE [Concomitant]
     Active Substance: TOZINAMERAN
     Indication: Immunisation
     Dosage: TIME INTERVAL: TOTAL: 3RD BOOSTER (1 IN ONCE)
     Route: 030
     Dates: start: 20220923, end: 20220923
  6. PFIZER-BIONTECH COVID-19 VACCINE [Concomitant]
     Active Substance: TOZINAMERAN
     Indication: Immunisation
     Dosage: TIME INTERVAL: TOTAL: 1ST DOSE (1 IN ONCE)
     Route: 030
     Dates: start: 20210330, end: 20210330
  7. PFIZER-BIONTECH COVID-19 VACCINE [Concomitant]
     Active Substance: TOZINAMERAN
     Indication: Immunisation
     Dosage: TIME INTERVAL: TOTAL: 2ND DOSE (1 IN ONCE)
     Route: 030
     Dates: start: 20210420, end: 20210420
  8. PFIZER-BIONTECH COVID-19 VACCINE [Concomitant]
     Active Substance: TOZINAMERAN
     Indication: Immunisation
     Dosage: TIME INTERVAL: TOTAL: 1ST BOOSTER (1 IN ONCE)
     Route: 030
     Dates: start: 20211129, end: 20211129

REACTIONS (3)
  - Osteoarthritis [Recovering/Resolving]
  - Polyp [Recovered/Resolved]
  - Knee arthroplasty [Unknown]

NARRATIVE: CASE EVENT DATE: 20211201
